FAERS Safety Report 16575038 (Version 2)
Quarter: 2019Q3

REPORT INFORMATION
  Report Type: Spontaneous
  Country: DK (occurrence: DK)
  Receive Date: 20190715
  Receipt Date: 20190816
  Transmission Date: 20191004
  Serious: Yes (Death, Hospitalization)
  Sender: FDA-Public Use
  Company Number: PHHY2019DK163212

PATIENT
  Age: 64 Year
  Sex: Male

DRUGS (3)
  1. GEMCITABINE. [Suspect]
     Active Substance: GEMCITABINE
     Indication: LUNG NEOPLASM MALIGNANT
     Dosage: 1880 MG, UNK
     Route: 065
     Dates: start: 20190607
  2. GEMCITABINE. [Suspect]
     Active Substance: GEMCITABINE
     Dosage: 1880 MG, UNK
     Route: 065
     Dates: start: 20190614
  3. CARBOPLATIN. [Suspect]
     Active Substance: CARBOPLATIN
     Indication: LUNG NEOPLASM MALIGNANT
     Dosage: 595 MG, UNK
     Route: 065
     Dates: start: 20190607

REACTIONS (8)
  - Respiratory failure [Fatal]
  - Fatigue [Fatal]
  - Hyperhidrosis [Fatal]
  - Metabolic disorder [Fatal]
  - Dyspnoea [Fatal]
  - Pancytopenia [Fatal]
  - Hypotension [Fatal]
  - Pulmonary congestion [Fatal]
